FAERS Safety Report 20109639 (Version 3)
Quarter: 2021Q4

REPORT INFORMATION
  Report Type: Spontaneous
  Country: CZ (occurrence: CZ)
  Receive Date: 20211124
  Receipt Date: 20211213
  Transmission Date: 20220303
  Serious: Yes (Hospitalization, Other)
  Sender: FDA-Public Use
  Company Number: CZ-FERRINGPH-2021FE07426

PATIENT
  Age: 77 Year
  Sex: Male

DRUGS (14)
  1. MINIRIN [Suspect]
     Active Substance: DESMOPRESSIN ACETATE
     Indication: Nocturia
     Dosage: 1 DF, 1 TIME DAILY, (0-0-0-1)
     Route: 048
  2. BISOPROLOL [Concomitant]
     Active Substance: BISOPROLOL
     Dosage: 5 MG, 1 TIME DAILY (1-0-0)
     Route: 065
  3. PERINDOPRIL [Concomitant]
     Active Substance: PERINDOPRIL
     Dosage: 4 MG, 1 TIME DAILY (1-0-0)
     Route: 065
  4. SPIRONOLACTONE [Concomitant]
     Active Substance: SPIRONOLACTONE
     Dosage: 25 MG, 1 TIME DAILY (1-0-0)
  5. LERCANIDIPINE [Concomitant]
     Active Substance: LERCANIDIPINE
     Dosage: 20 MG, 1 TIME DAILY (0-0-1)
     Route: 065
  6. OMEPRAZOLE [Concomitant]
     Active Substance: OMEPRAZOLE
     Dosage: 20 MG, 1 TIME DAILY (1-0-0)
  7. ATORVASTATIN [Concomitant]
     Active Substance: ATORVASTATIN
     Dosage: 15 MG, 1 TIME DAILY (0-0-1)
     Route: 065
  8. ASPIRIN [Concomitant]
     Active Substance: ASPIRIN
     Dosage: 100 MG, 1 TIME DAILY (1-0-0)
     Route: 065
  9. SOLIFENACIN [Concomitant]
     Active Substance: SOLIFENACIN
     Dosage: 10 MG, 1 TIME DAILY (1-0-0)
     Route: 065
  10. DARIFENACIN [Concomitant]
     Active Substance: DARIFENACIN
     Dosage: 15 MG, 1 TIME DAILY (1-0-0)
     Route: 065
  11. DOXAZOSIN [Concomitant]
     Active Substance: DOXAZOSIN MESYLATE
     Dosage: 4 MG, 1 TIME DAILY (0-0-1)
     Route: 065
  12. SODIUM CHLORIDE [Concomitant]
     Active Substance: SODIUM CHLORIDE
     Indication: Hyponatraemia
     Dosage: 1000 MG, 2 TIMES DAILY (1-0-1)
  13. LEVETIRACETAM [Concomitant]
     Active Substance: LEVETIRACETAM
     Dosage: 500 MG, 2 TIMES DAILY (1-0-1)
     Route: 065
  14. GABAPENTIN [Concomitant]
     Active Substance: GABAPENTIN
     Dosage: 100 MG, 3 TIMES DAILY (1-1-1)
     Route: 065

REACTIONS (3)
  - Hyponatraemia [Recovered/Resolved]
  - Peripheral swelling [Recovered/Resolved]
  - Contraindicated product administered [Recovered/Resolved]
